FAERS Safety Report 6726632-3 (Version None)
Quarter: 2010Q2

REPORT INFORMATION
  Report Type: 
  Country: None (occurrence: None)
  Receive Date: 20100514
  Receipt Date: 20100504
  Transmission Date: 20101027
  Serious: Yes (Hospitalization, Other)
  Sender: FDA-Public Use
  Company Number: DE-ABBOTT-10P-062-0642343-00

PATIENT
  Sex: Male
  Weight: 59 kg

DRUGS (4)
  1. KALETRA [Suspect]
     Indication: HIV INFECTION
     Route: 048
     Dates: start: 20100105
  2. TRUVADA [Concomitant]
     Indication: HIV INFECTION
     Route: 048
     Dates: start: 20100105
  3. CLARITHROMYCIN [Concomitant]
     Indication: MYCOBACTERIUM AVIUM COMPLEX INFECTION
     Dates: start: 20100315
  4. MYAMBUTOL [Concomitant]
     Indication: MYCOBACTERIUM AVIUM COMPLEX INFECTION
     Route: 048
     Dates: start: 20100315

REACTIONS (6)
  - ABSCESS [None]
  - LYMPHADENITIS [None]
  - LYMPHADENOPATHY [None]
  - MYCOBACTERIUM AVIUM COMPLEX INFECTION [None]
  - PURULENT DISCHARGE [None]
  - WEIGHT DECREASED [None]
